FAERS Safety Report 11515014 (Version 1)
Quarter: 2015Q3

REPORT INFORMATION
  Report Type: Spontaneous
  Country: US (occurrence: US)
  Receive Date: 20150916
  Receipt Date: 20150916
  Transmission Date: 20151125
  Serious: Yes (Life-Threatening, Hospitalization, Disabling, Congenital Anomaly, Other)
  Sender: FDA-Public Use
  Company Number: US-FRESENIUS KABI-FK201504364

PATIENT
  Age: 0 Year
  Sex: Male

DRUGS (1)
  1. METHOTREXATE (MANUFACTURER UNKNOWN) [Suspect]
     Active Substance: METHOTREXATE
     Indication: ECTOPIC PREGNANCY TERMINATION
     Route: 064
     Dates: start: 20111228

REACTIONS (26)
  - Foetal exposure during pregnancy [Unknown]
  - Spinal cord operation [Not Recovered/Not Resolved]
  - Hydrocephalus [Unknown]
  - Skull malformation [Unknown]
  - Delayed fontanelle closure [Unknown]
  - Cognitive disorder [Unknown]
  - Tremor [Not Recovered/Not Resolved]
  - Talipes [Unknown]
  - Spina bifida [Unknown]
  - Tracheostomy [Unknown]
  - Gastrointestinal tube insertion [Unknown]
  - Low set ears [Unknown]
  - Nose deformity [Unknown]
  - Cyanosis [Not Recovered/Not Resolved]
  - Dysphagia [Not Recovered/Not Resolved]
  - Gastrostomy [Unknown]
  - Developmental delay [Unknown]
  - Motor developmental delay [Unknown]
  - Facial nerve disorder [Not Recovered/Not Resolved]
  - Gastrooesophageal reflux disease [Unknown]
  - Ventriculo-peritoneal shunt [Unknown]
  - Meningomyelocele [Unknown]
  - Haemorrhage intracranial [Unknown]
  - Respiratory failure [Unknown]
  - Gait disturbance [Unknown]
  - Seizure [Not Recovered/Not Resolved]

NARRATIVE: CASE EVENT DATE: 201111
